FAERS Safety Report 23568535 (Version 1)
Quarter: 2024Q1

REPORT INFORMATION
  Report Type: Spontaneous
  Country: US (occurrence: US)
  Receive Date: 20240227
  Receipt Date: 20240227
  Transmission Date: 20240410
  Serious: Yes (Other)
  Sender: FDA-Public Use
  Company Number: US-SA-SAC20240226000456

PATIENT
  Age: 80 Year
  Sex: Female

DRUGS (28)
  1. DUPIXENT [Suspect]
     Active Substance: DUPILUMAB
     Indication: Asthma
     Dosage: 300 MG, QOW
     Route: 058
     Dates: start: 20200319
  2. FLUTICASONE [Concomitant]
     Active Substance: FLUTICASONE
  3. IPRATROPIUM [Concomitant]
     Active Substance: IPRATROPIUM
  4. TRAZODONE [Concomitant]
     Active Substance: TRAZODONE HYDROCHLORIDE
  5. OZEMPIC [Concomitant]
     Active Substance: SEMAGLUTIDE
  6. TRESIBA [Concomitant]
     Active Substance: INSULIN DEGLUDEC
  7. ELIQUIS [Concomitant]
     Active Substance: APIXABAN
  8. VERAPAMIL [Concomitant]
     Active Substance: VERAPAMIL HYDROCHLORIDE
  9. BASAGLAR [Concomitant]
     Active Substance: INSULIN GLARGINE
  10. VICTOZA [Concomitant]
     Active Substance: LIRAGLUTIDE
  11. JARDIANCE [Concomitant]
     Active Substance: EMPAGLIFLOZIN
  12. CRESTOR [Concomitant]
     Active Substance: ROSUVASTATIN CALCIUM
  13. FLECAINIDE [Concomitant]
     Active Substance: FLECAINIDE
  14. TRADJENTA [Concomitant]
     Active Substance: LINAGLIPTIN
  15. DENAVIR [Concomitant]
     Active Substance: PENCICLOVIR
  16. XOLAIR [Concomitant]
     Active Substance: OMALIZUMAB
  17. CODEINE [Concomitant]
     Active Substance: CODEINE
  18. GLIMEPIRIDE [Concomitant]
     Active Substance: GLIMEPIRIDE
  19. BENICAR [Concomitant]
     Active Substance: OLMESARTAN MEDOXOMIL
  20. IRON [Concomitant]
     Active Substance: IRON
  21. SIMVASTATIN [Concomitant]
     Active Substance: SIMVASTATIN
  22. ALLOPURINOL [Concomitant]
     Active Substance: ALLOPURINOL
  23. FEXOFENADINE [Concomitant]
     Active Substance: FEXOFENADINE HYDROCHLORIDE
  24. ESOMEPRAZOLE [Concomitant]
     Active Substance: ESOMEPRAZOLE
  25. ADVAIR HFA [Concomitant]
     Active Substance: FLUTICASONE PROPIONATE\SALMETEROL XINAFOATE
  26. SPIRIVA [Concomitant]
     Active Substance: TIOTROPIUM BROMIDE MONOHYDRATE
  27. ALBUTEROL [Concomitant]
     Active Substance: ALBUTEROL
  28. METFORMIN [Concomitant]
     Active Substance: METFORMIN HYDROCHLORIDE

REACTIONS (1)
  - Transient ischaemic attack [Unknown]

NARRATIVE: CASE EVENT DATE: 20240222
